FAERS Safety Report 16788978 (Version 4)
Quarter: 2020Q4

REPORT INFORMATION
  Report Type: Report from Study
  Country: JP (occurrence: JP)
  Receive Date: 20190910
  Receipt Date: 20201208
  Transmission Date: 20210113
  Serious: Yes (Hospitalization, Other)
  Sender: FDA-Public Use
  Company Number: JP-VIIV HEALTHCARE LIMITED-JP2017JPN098293

PATIENT
  Sex: Male

DRUGS (24)
  1. DOLUTEGRAVIR [Suspect]
     Active Substance: DOLUTEGRAVIR
     Indication: HIV INFECTION
     Dosage: 50 MG, 1D
     Route: 048
     Dates: start: 20160106, end: 20190716
  2. LAC-B GRANULAR POWDER N [Concomitant]
     Indication: PROPHYLAXIS
     Dosage: UNK
     Dates: start: 20180110, end: 20180515
  3. ZITHROMAC [Suspect]
     Active Substance: AZITHROMYCIN DIHYDRATE
     Dosage: 600 MG, QD
     Route: 065
     Dates: start: 20160119
  4. MYCOBUTIN [Suspect]
     Active Substance: RIFABUTIN
     Indication: MYCOBACTERIUM AVIUM COMPLEX INFECTION
     Dosage: 300 MG, QD
     Route: 065
     Dates: start: 20160119, end: 20190625
  5. BENAMBAX [Concomitant]
     Active Substance: PENTAMIDINE
     Dosage: UNK
     Dates: start: 20160401, end: 20160511
  6. BAKTAR COMBINATION TABLETS [Concomitant]
     Active Substance: SULFAMETHOXAZOLE\TRIMETHOPRIM
     Indication: PROPHYLAXIS
     Dosage: 1 DF, QD
     Dates: start: 20160511
  7. INFLUENZA HA VACCINE [Concomitant]
     Active Substance: INFLUENZA VIRUS VACCINE
     Indication: PROPHYLAXIS
     Dosage: UNK
     Dates: start: 20181128, end: 20181128
  8. NEXIUM [Concomitant]
     Active Substance: ESOMEPRAZOLE MAGNESIUM
     Indication: PROPHYLAXIS
     Dosage: UNK
     Dates: start: 20190626, end: 20191009
  9. MS REISHIPPU [Concomitant]
     Active Substance: CAMPHOR\MENTHOL\METHYL SALICYLATE
     Indication: PAIN PROPHYLAXIS
     Dosage: UNK
     Dates: start: 20180919, end: 20190128
  10. EPZICOM [Suspect]
     Active Substance: ABACAVIR SULFATE\LAMIVUDINE
     Indication: HIV INFECTION
     Dosage: 1 DF, 1D
     Route: 048
     Dates: start: 20151211, end: 20190716
  11. LAC-B GRANULAR POWDER N [Concomitant]
     Dosage: UNK
     Dates: start: 20190424, end: 20191003
  12. INFLUENZA HA VACCINE [Concomitant]
     Active Substance: INFLUENZA VIRUS VACCINE
     Dosage: UNK
     Dates: start: 20191106, end: 20191106
  13. ZITHROMAC [Suspect]
     Active Substance: AZITHROMYCIN DIHYDRATE
     Indication: OPPORTUNISTIC INFECTION PROPHYLAXIS
     Dosage: 1200 MG, QD
     Route: 065
     Dates: start: 20151209, end: 20151213
  14. ISENTRESS [Concomitant]
     Active Substance: RALTEGRAVIR POTASSIUM
     Indication: HIV INFECTION
     Dosage: 800 MG, 1D
     Dates: start: 20151211, end: 20160105
  15. LOXOPROFEN SODIUM HYDRATE TABLET [Concomitant]
     Indication: PAIN PROPHYLAXIS
     Dosage: UNK
     Dates: start: 20180919, end: 20190128
  16. LOXOPROFEN SODIUM HYDRATE TABLET [Concomitant]
     Dosage: UNK
     Dates: start: 20191204
  17. REBAMIPIDE [Concomitant]
     Active Substance: REBAMIPIDE
     Indication: PAIN PROPHYLAXIS
     Dosage: UNK
     Dates: start: 20181203, end: 20181207
  18. CEFAZOLIN SODIUM INJECTION [Concomitant]
     Indication: INFECTION PROPHYLAXIS
     Dosage: UNK
     Dates: start: 20181203, end: 20181203
  19. MS REISHIPPU [Concomitant]
     Active Substance: CAMPHOR\MENTHOL\METHYL SALICYLATE
     Dosage: UNK
     Dates: start: 20191225, end: 20200201
  20. BIKTARVY [Concomitant]
     Active Substance: BICTEGRAVIR SODIUM\EMTRICITABINE\TENOFOVIR ALAFENAMIDE FUMARATE
     Indication: HIV INFECTION
     Dosage: UNK
     Dates: start: 20190717
  21. ESANBUTOL [Suspect]
     Active Substance: ETHAMBUTOL HYDROCHLORIDE
     Indication: MYCOBACTERIUM AVIUM COMPLEX INFECTION
     Dosage: 1000 MG, QD
     Route: 065
     Dates: start: 20160119, end: 20190625
  22. LOPERAMIDE HYDROCHLORIDE CAPSULE [Concomitant]
     Indication: PROPHYLAXIS
     Dosage: UNK
     Dates: start: 20170630, end: 20190716
  23. ZITHROMAC [Suspect]
     Active Substance: AZITHROMYCIN DIHYDRATE
     Indication: MYCOBACTERIUM AVIUM COMPLEX INFECTION
     Dosage: 1200 MG, QD
     Route: 065
     Dates: start: 20151224, end: 20151224
  24. BENAMBAX [Concomitant]
     Active Substance: PENTAMIDINE
     Indication: PROPHYLAXIS
     Dosage: UNK
     Dates: start: 20151224, end: 20160331

REACTIONS (9)
  - Oesophageal candidiasis [Recovered/Resolved]
  - Pancytopenia [Recovered/Resolved]
  - Mycobacterium avium complex infection [Recovering/Resolving]
  - Osteomyelitis [Recovered/Resolved]
  - Seasonal allergy [Not Recovered/Not Resolved]
  - Oropharyngeal candidiasis [Recovered/Resolved]
  - Pain in extremity [Recovered/Resolved]
  - Osteonecrosis [Not Recovered/Not Resolved]
  - Deafness traumatic [Not Recovered/Not Resolved]

NARRATIVE: CASE EVENT DATE: 20151216
